FAERS Safety Report 7683659-5 (Version None)
Quarter: 2011Q3

REPORT INFORMATION
  Report Type: 
  Country: None (occurrence: None)
  Receive Date: 20110815
  Receipt Date: 20110627
  Transmission Date: 20111222
  Serious: Yes (Other)
  Sender: FDA-Public Use
  Company Number: PHHY2011ZA68890

PATIENT
  Sex: Male
  Weight: 2.72 kg

DRUGS (1)
  1. VALSARTAN [Suspect]
     Dosage: MATERNAL DOSE: 80 MG
     Route: 064

REACTIONS (2)
  - MATERNAL EXPOSURE DURING PREGNANCY [None]
  - PREMATURE BABY [None]
